FAERS Safety Report 17801824 (Version 1)
Quarter: 2020Q2

REPORT INFORMATION
  Report Type: Spontaneous
  Country: US (occurrence: US)
  Receive Date: 20200518
  Receipt Date: 20200518
  Transmission Date: 20200714
  Serious: Yes (Other)
  Sender: FDA-Public Use
  Company Number: None

PATIENT
  Age: 46 Year
  Sex: Female
  Weight: 70.3 kg

DRUGS (9)
  1. TOCILIZUMAB. [Concomitant]
     Active Substance: TOCILIZUMAB
     Dates: start: 20200512, end: 20200512
  2. ZINC. [Concomitant]
     Active Substance: ZINC
     Dates: start: 20200512
  3. ATORVASTATIN [Concomitant]
     Active Substance: ATORVASTATIN
     Dates: start: 20200511
  4. METHYLPREDNISOLONE. [Concomitant]
     Active Substance: METHYLPREDNISOLONE
     Dates: start: 20200511, end: 20200518
  5. LEVETIRACETAM. [Concomitant]
     Active Substance: LEVETIRACETAM
     Dates: start: 20200516
  6. REMDESIVIR. [Suspect]
     Active Substance: REMDESIVIR
     Indication: COVID-19
     Route: 041
     Dates: start: 20200513, end: 20200516
  7. QUETIAPINE. [Concomitant]
     Active Substance: QUETIAPINE
     Dates: start: 20200515, end: 20200516
  8. MELATONIN [Concomitant]
     Active Substance: MELATONIN
     Dates: start: 20200511
  9. ASCORBIC ACID. [Concomitant]
     Active Substance: ASCORBIC ACID
     Dates: start: 20200511

REACTIONS (1)
  - Seizure [None]

NARRATIVE: CASE EVENT DATE: 20200515
